FAERS Safety Report 7576514-2 (Version None)
Quarter: 2011Q2

REPORT INFORMATION
  Report Type: 
  Country: None (occurrence: None)
  Receive Date: 20110624
  Receipt Date: 20110624
  Transmission Date: 20111010
  Serious: Yes (Life-Threatening, Hospitalization)
  Sender: FDA-Public Use
  Company Number: None

PATIENT
  Age: 86 Year
  Sex: Male
  Weight: 54.4316 kg

DRUGS (1)
  1. AVELOX [Suspect]
     Indication: PNEUMONIA
     Dosage: 400 MG ONCE A DAY
     Dates: start: 20110520

REACTIONS (3)
  - BODY TEMPERATURE INCREASED [None]
  - ANAPHYLACTIC REACTION [None]
  - CONVULSION [None]
